FAERS Safety Report 7594739-7 (Version None)
Quarter: 2011Q3

REPORT INFORMATION
  Report Type: 
  Country: None (occurrence: None)
  Receive Date: 20110707
  Receipt Date: 20110627
  Transmission Date: 20111222
  Serious: Yes (Other)
  Sender: FDA-Public Use
  Company Number: ZA-JNJFOC-20110700172

PATIENT
  Age: 20 Year
  Sex: Male

DRUGS (3)
  1. VALPROATE SODIUM [Suspect]
     Indication: EPILEPSY
     Dosage: 1000 MG AT MORNING AND 1500 MG AT NIGHT
     Route: 065
  2. TOPIRAMATE [Suspect]
     Indication: EPILEPSY
     Route: 048
  3. CARBAMAZEPINE [Suspect]
     Indication: EPILEPSY
     Route: 065

REACTIONS (4)
  - PSYCHOMOTOR RETARDATION [None]
  - COGNITIVE DISORDER [None]
  - AGGRESSION [None]
  - ABNORMAL BEHAVIOUR [None]
